FAERS Safety Report 20921639 (Version 2)
Quarter: 2022Q2

REPORT INFORMATION
  Report Type: Spontaneous
  Country: JP (occurrence: JP)
  Receive Date: 20220606
  Receipt Date: 20220610
  Transmission Date: 20220721
  Serious: Yes (Other)
  Sender: FDA-Public Use
  Company Number: JP-BEH-2022146009

PATIENT
  Age: 61 Year
  Sex: Male
  Weight: 56 kg

DRUGS (8)
  1. IDELVION [Suspect]
     Active Substance: COAGULATION FACTOR IX RECOMBINANT HUMAN
     Indication: Haemorrhage prophylaxis
     Dosage: 4000 INTERNATIONAL UNIT, SINGLE
     Route: 042
     Dates: start: 20220530, end: 20220530
  2. IDELVION [Suspect]
     Active Substance: COAGULATION FACTOR IX RECOMBINANT HUMAN
     Indication: Haemorrhage prophylaxis
     Dosage: 4000 INTERNATIONAL UNIT, SINGLE
     Route: 042
     Dates: start: 20220530, end: 20220530
  3. IDELVION [Suspect]
     Active Substance: COAGULATION FACTOR IX RECOMBINANT HUMAN
     Indication: Haemostasis
     Dosage: 2000 INTERNATIONAL UNIT
     Route: 042
     Dates: start: 20220530, end: 20220530
  4. IDELVION [Suspect]
     Active Substance: COAGULATION FACTOR IX RECOMBINANT HUMAN
     Indication: Haemostasis
     Dosage: 2000 INTERNATIONAL UNIT
     Route: 042
     Dates: start: 20220530, end: 20220530
  5. IDELVION [Suspect]
     Active Substance: COAGULATION FACTOR IX RECOMBINANT HUMAN
     Dosage: 4000 INTERNATIONAL UNIT
     Route: 065
     Dates: start: 20220601
  6. IDELVION [Suspect]
     Active Substance: COAGULATION FACTOR IX RECOMBINANT HUMAN
     Dosage: 4000 INTERNATIONAL UNIT
     Route: 065
     Dates: start: 20220601
  7. IDELVION [Suspect]
     Active Substance: COAGULATION FACTOR IX RECOMBINANT HUMAN
     Dosage: 2000 INTERNATIONAL UNIT
     Route: 065
     Dates: start: 20220602
  8. IDELVION [Suspect]
     Active Substance: COAGULATION FACTOR IX RECOMBINANT HUMAN
     Dosage: 2000 INTERNATIONAL UNIT
     Route: 065
     Dates: start: 20220602

REACTIONS (2)
  - Eye haemorrhage [Unknown]
  - Endophthalmitis [Unknown]

NARRATIVE: CASE EVENT DATE: 20220530
